FAERS Safety Report 5937826-9 (Version None)
Quarter: 2008Q4

REPORT INFORMATION
  Report Type: 
  Country: None (occurrence: None)
  Receive Date: 20081029
  Receipt Date: 20081015
  Transmission Date: 20090506
  Serious: Yes (Hospitalization)
  Sender: FDA-Public Use
  Company Number: DSJ-2008-11878

PATIENT
  Age: 52 Year
  Sex: Male

DRUGS (2)
  1. OLMESARTAN MEDOXOMIL [Suspect]
     Indication: DRUG USE FOR UNKNOWN INDICATION
     Dosage: 40 MG,
  2. NIFEDIPINE - SLOW RELEASE (NIFEDIPINE) (PROLONGED-RELEASE TABLET) (NIF [Suspect]
     Indication: DRUG USE FOR UNKNOWN INDICATION
     Dosage: 40 MG,

REACTIONS (11)
  - AREFLEXIA [None]
  - AUTONOMIC NEUROPATHY [None]
  - BLOOD PRESSURE SYSTOLIC INCREASED [None]
  - CARDIOVASCULAR DISORDER [None]
  - CHRONIC OBSTRUCTIVE PULMONARY DISEASE [None]
  - DYSPNOEA EXERTIONAL [None]
  - HEART RATE INCREASED [None]
  - NEUROPATHY PERIPHERAL [None]
  - PALLANAESTHESIA [None]
  - PLEURAL EFFUSION [None]
  - RETINOPATHY PROLIFERATIVE [None]
